FAERS Safety Report 20009100 (Version 2)
Quarter: 2021Q4

REPORT INFORMATION
  Report Type: Spontaneous
  Country: US (occurrence: US)
  Receive Date: 20211029
  Receipt Date: 20211126
  Transmission Date: 20220303
  Serious: Yes (Other)
  Sender: FDA-Public Use
  Company Number: US-CIPLA (EU) LIMITED-2021US07072

PATIENT

DRUGS (3)
  1. ALBUTEROL [Suspect]
     Active Substance: ALBUTEROL
     Indication: Chronic obstructive pulmonary disease
     Dosage: UNK, MORNING AND EVENING EVERY 6 HOURS OR WHENEVER REQUIRED
     Route: 065
  2. ALBUTEROL [Suspect]
     Active Substance: ALBUTEROL
     Dosage: UNK, MORNING AND EVENING EVERY 6 HOURS OR WHENEVER REQUIRED
     Route: 065
     Dates: start: 2021, end: 202110
  3. ALBUTEROL [Suspect]
     Active Substance: ALBUTEROL
     Dosage: UNK, MORNING AND EVENING EVERY 6 HOURS OR WHENEVER REQUIRED
     Route: 065
     Dates: start: 2021

REACTIONS (3)
  - Asthma [Recovered/Resolved]
  - Drug ineffective [Unknown]
  - Device use issue [Unknown]

NARRATIVE: CASE EVENT DATE: 20211001
